FAERS Safety Report 9274321 (Version 2)
Quarter: 2013Q3

REPORT INFORMATION
  Report Type: Spontaneous
  Country: AU (occurrence: AU)
  Receive Date: 20130506
  Receipt Date: 20130717
  Transmission Date: 20140515
  Serious: Yes (Other)
  Sender: FDA-Public Use
  Company Number: AU-ELI_LILLY_AND_COMPANY-AU201304008721

PATIENT
  Age: 63 Year
  Sex: Male

DRUGS (2)
  1. CIALIS [Suspect]
     Indication: ERECTILE DYSFUNCTION
     Dosage: 1 DF, PRN
     Dates: start: 20130423, end: 20130423
  2. PANADOL [Concomitant]
     Dosage: UNK

REACTIONS (2)
  - Retinopathy [Not Recovered/Not Resolved]
  - Retinal exudates [Not Recovered/Not Resolved]
